FAERS Safety Report 13766895 (Version 1)
Quarter: 2017Q3

REPORT INFORMATION
  Report Type: Spontaneous
  Country: US (occurrence: US)
  Receive Date: 20170719
  Receipt Date: 20170719
  Transmission Date: 20171127
  Serious: Yes (Other)
  Sender: FDA-Public Use
  Company Number: None

PATIENT
  Age: 41 Year
  Sex: Male
  Weight: 77.85 kg

DRUGS (1)
  1. ATRIPLA [Suspect]
     Active Substance: EFAVIRENZ\EMTRICITABINE\TENOFOVIR DISOPROXIL FUMARATE
     Indication: HIV INFECTION
     Dosage: ?          OTHER DOSE:MG;?
     Route: 048

REACTIONS (3)
  - Pain in extremity [None]
  - Rash maculo-papular [None]
  - Skin exfoliation [None]

NARRATIVE: CASE EVENT DATE: 20160722
